FAERS Safety Report 4674915-3 (Version None)
Quarter: 2005Q2

REPORT INFORMATION
  Report Type: 
  Country: None (occurrence: None)
  Receive Date: 20050524
  Receipt Date: 20050509
  Transmission Date: 20051028
  Serious: Yes (Life-Threatening, Disabling)
  Sender: FDA-Public Use
  Company Number: 2005-00300

PATIENT
  Age: 63 Year
  Sex: Male

DRUGS (6)
  1. IMMUCYST [Suspect]
     Indication: TRANSITIONAL CELL CANCER OF THE RENAL PELVIS AND URETER
     Dosage: 81.0 MG, I.VES., BLADDER
     Dates: start: 20041220, end: 20050117
  2. AMOLDIPINE BESILATE [Concomitant]
  3. ENALAPRIL MALEATE [Concomitant]
  4. ALLOPURINOL [Concomitant]
  5. PRAVASTATIN SODIUM [Concomitant]
  6. SPIRONOLACTONE [Concomitant]

REACTIONS (3)
  - HYPERKALAEMIA [None]
  - RENAL FAILURE ACUTE [None]
  - SEPTIC SHOCK [None]
